FAERS Safety Report 8711766 (Version 2)
Quarter: 2012Q4

REPORT INFORMATION
  Report Type: 
  Country: US (occurrence: US)
  Receive Date: 20120807
  Receipt Date: 20120925
  Transmission Date: 20130627
  Serious: Yes (Hospitalization)
  Sender: FDA-Public Use
  Company Number: US-BAYER-2012-076766

PATIENT
  Age: 40 Year
  Sex: Female
  Weight: 88.89 kg

DRUGS (33)
  1. OCELLA [Suspect]
     Indication: CONTRACEPTION
     Dosage: UNK
     Dates: start: 20090109, end: 20100830
  2. NORVASC [Concomitant]
     Dosage: 10 mg, daily
  3. METOPROLOL [Concomitant]
     Indication: HYPERTENSION
     Dosage: 25 mg, daily
     Dates: start: 200911, end: 201011
  4. ALLEGRA [Concomitant]
     Indication: MULTIPLE ALLERGIES
     Dosage: 30 mg, as needed
  5. ALBUTEROL [Concomitant]
     Indication: WHEEZING
     Dosage: 2 puffs, three times a day
     Route: 045
  6. VITAMIN D [Concomitant]
     Dosage: 50,000 units monthly
  7. FERROUS SULFATE [Concomitant]
     Dosage: 325 mg, every other day
  8. POTASSIUM CHLORIDE [Concomitant]
     Dosage: 20 mEq, Daily
  9. WELLBUTRIN SR [Concomitant]
     Dosage: 200 mg, twice daily
  10. LEXAPRO [Concomitant]
     Dosage: 20 mg, twice daily
     Dates: start: 200801, end: 201010
  11. ASPIRIN [Concomitant]
     Dosage: 81 mg, Daily
  12. HYDROXYZINE HCL [Concomitant]
     Indication: MULTIPLE ALLERGIES
     Dosage: 25 mg, UNK
     Dates: start: 20100503, end: 20100805
  13. HYDROXYZINE HCL [Concomitant]
     Indication: MULTIPLE ALLERGIES
     Dosage: UNK
     Dates: start: 201006, end: 201011
  14. ADVAIR DISKUS [Concomitant]
     Dosage: 500-50, UNK
     Dates: start: 20100703
  15. LUNESTA [Concomitant]
     Indication: INSOMNIA
     Dosage: 3 mg, UNK
     Dates: start: 20100511, end: 20100715
  16. LUNESTA [Concomitant]
     Indication: INSOMNIA
     Dosage: UNK
     Dates: start: 201007
  17. LUNESTA [Concomitant]
     Indication: INSOMNIA
     Dosage: UNK
     Dates: start: 201009
  18. TUSSIONEX [Concomitant]
     Dosage: UNK
     Dates: start: 20100715
  19. PANTOPRAZOLE [Concomitant]
     Dosage: 40 mg, UNK
     Dates: start: 20100818
  20. AZITHROMYCIN [Concomitant]
     Dosage: 500 mg, UNK
     Dates: start: 20100818
  21. LEVAQUIN [Concomitant]
     Dosage: 500 mg, UNK
     Dates: start: 20100830
  22. AMLODIPINE BESYLATE [Concomitant]
     Indication: HYPERTENSION
     Dosage: 10 mg, UNK
     Dates: start: 200610, end: 201012
  23. FLOVENT HFA [Concomitant]
     Dosage: 110 ?g, UNK
     Dates: start: 201008
  24. AZELASTINE HYDROCHLORIDE [Concomitant]
     Dosage: 137 ?g, UNK
     Dates: start: 201005, end: 201009
  25. FLUTICASONE [Concomitant]
     Dosage: UNK
     Dates: start: 200809, end: 201005
  26. ADVAIR [Concomitant]
  27. NSAID^S [Concomitant]
     Dosage: UNK
     Dates: start: 2002
  28. KLOR-CON [Concomitant]
     Indication: BLOOD POTASSIUM DECREASED
     Dosage: M20 tablets
     Dates: start: 200908, end: 201012
  29. FEXOFENADINE [Concomitant]
     Indication: MULTIPLE ALLERGIES
     Dosage: 180 mg, UNK
     Dates: start: 200809, end: 201012
  30. BUPROPION [Concomitant]
     Indication: DEPRESSION
     Dosage: 150 mg, UNK
     Dates: start: 201007, end: 201010
  31. VENLAFAXINE HYDROCHLORIDE [Concomitant]
     Indication: DEPRESSION
     Dosage: 75 mg, UNK
     Dates: start: 201004, end: 201012
  32. TUSSIONEX PENNKINETIC [Concomitant]
     Indication: MULTIPLE ALLERGIES
     Dosage: UNK
     Dates: start: 200903, end: 201010
  33. HYDROCODONE W/APAP [Concomitant]
     Indication: PAIN
     Dosage: UNK
     Dates: start: 201003, end: 201007

REACTIONS (2)
  - Pulmonary embolism [None]
  - Deep vein thrombosis [None]
